FAERS Safety Report 6058269-6 (Version None)
Quarter: 2009Q1

REPORT INFORMATION
  Report Type: 
  Country: None (occurrence: None)
  Receive Date: 20090130
  Receipt Date: 20090123
  Transmission Date: 20090719
  Serious: Yes (Hospitalization)
  Sender: FDA-Public Use
  Company Number: FR-WYE-H07738809

PATIENT
  Sex: Female

DRUGS (13)
  1. INIPOMP [Suspect]
     Dosage: DOSE AND FREQUENCY UNSPECIFIED
     Route: 048
     Dates: end: 20080405
  2. LASILIX [Suspect]
     Dosage: UNSPECIFIED
     Route: 048
     Dates: end: 20080407
  3. RAMIPRIL [Suspect]
     Dosage: UNSPECIFIED
     Route: 048
     Dates: end: 20080414
  4. CEFTAZIDIME [Suspect]
     Dosage: UNSPECIFIED
     Route: 048
     Dates: end: 20080403
  5. CARDENSIEL [Suspect]
     Dosage: UNSPECIFIED
     Route: 048
     Dates: end: 20080407
  6. SEROPRAM [Concomitant]
     Dosage: UNSPECIFIED
     Dates: start: 20080325
  7. ALPRAZOLAM [Concomitant]
     Dosage: UNSPECIFIED
     Dates: end: 20080325
  8. FORLAX [Concomitant]
     Dosage: UNSPECIFIED
  9. ACETAMINOPHEN [Concomitant]
     Dosage: UNSPECIFIED
     Dates: start: 20080320
  10. AMOXICILLIN AND CLAVULANATE POTASSIUM [Concomitant]
     Dosage: UNSPECIFIED
     Dates: start: 20080322, end: 20080328
  11. AMIODARONE HYDROCHLORIDE [Concomitant]
     Dosage: UNSPECIFIED
     Dates: end: 20080320
  12. PREVISCAN [Suspect]
     Dosage: UNSPECIFIED
     Route: 048
     Dates: start: 20060101, end: 20080408
  13. LAROXYL [Concomitant]
     Dosage: UNSPECIFIED
     Dates: end: 20080325

REACTIONS (9)
  - BRONCHOPNEUMOPATHY [None]
  - HYPERHIDROSIS [None]
  - INFLAMMATION [None]
  - LYMPHOPENIA [None]
  - NEUTROPENIA [None]
  - NORMOCHROMIC NORMOCYTIC ANAEMIA [None]
  - RENAL FAILURE [None]
  - THROMBOCYTOPENIA [None]
  - VOLUME BLOOD DECREASED [None]
